FAERS Safety Report 8516900-7 (Version None)
Quarter: 2012Q3

REPORT INFORMATION
  Report Type: 
  Country: None (occurrence: None)
  Receive Date: 20120718
  Receipt Date: 20120713
  Transmission Date: 20120928
  Serious: Yes (Other)
  Sender: FDA-Public Use
  Company Number: DE-ELI_LILLY_AND_COMPANY-DE201207004037

PATIENT
  Age: 69 Year
  Sex: Female

DRUGS (9)
  1. BISOPROLOL FUMARATE [Concomitant]
  2. BRILINTA [Concomitant]
  3. ESOMEPRAZOL                        /01479301/ [Concomitant]
  4. ASPIRIN [Concomitant]
  5. FORTEO [Suspect]
     Indication: OSTEOPOROSIS
     Dosage: 20 UG, UNK
     Route: 058
     Dates: start: 20040101, end: 20111101
  6. SIMVASTATIN [Concomitant]
  7. VALERIAAN [Concomitant]
  8. EYE DROPS [Concomitant]
     Indication: GLAUCOMA
  9. INSIDON [Concomitant]

REACTIONS (2)
  - INAPPROPRIATE SCHEDULE OF DRUG ADMINISTRATION [None]
  - MYOCARDIAL INFARCTION [None]
